FAERS Safety Report 8756331 (Version 2)
Quarter: 2012Q4

REPORT INFORMATION
  Report Type: 
  Country: CH (occurrence: CH)
  Receive Date: 20120828
  Receipt Date: 20120829
  Transmission Date: 20130627
  Serious: No
  Sender: FDA-Public Use
  Company Number: CH-JNJFOC-20120810619

PATIENT
  Sex: Female
  Weight: 59 kg

DRUGS (1)
  1. REMICADE [Suspect]
     Indication: PYODERMA GANGRENOSUM
     Dosage: 100 mg(dose strength), induction weeks 0,2 and 6
     Route: 042
     Dates: start: 201208

REACTIONS (1)
  - Off label use [Not Recovered/Not Resolved]
